FAERS Safety Report 5571395-0 (Version None)
Quarter: 2007Q4

REPORT INFORMATION
  Report Type: 
  Country: None (occurrence: None)
  Receive Date: 20071221
  Receipt Date: 20071002
  Transmission Date: 20080405
  Serious: No
  Sender: FDA-Public Use
  Company Number: A0685630A

PATIENT
  Age: 60 Year
  Sex: Female

DRUGS (2)
  1. FLUTICASONE PROPIONATE [Suspect]
     Route: 045
     Dates: start: 20070101, end: 20070101
  2. THYROID TAB [Concomitant]

REACTIONS (2)
  - MOUTH ULCERATION [None]
  - POSTNASAL DRIP [None]
